FAERS Safety Report 17074425 (Version 2)
Quarter: 2020Q1

REPORT INFORMATION
  Report Type: Other
  Country: DE (occurrence: DE)
  Receive Date: 20191126
  Receipt Date: 20200201
  Transmission Date: 20200409
  Serious: Yes (Other)
  Sender: FDA-Public Use
  Company Number: DE-CELLTRION INC.-2019DE026638

PATIENT

DRUGS (45)
  1. RITUXIMAB (UNKNOWN) [Suspect]
     Active Substance: RITUXIMAB
     Dosage: 750 MG, UNK
     Route: 041
     Dates: start: 20190807, end: 20190807
  2. RITUXIMAB (UNKNOWN) [Suspect]
     Active Substance: RITUXIMAB
     Dosage: 750 MG, UNK
     Route: 041
     Dates: start: 20190214, end: 20190214
  3. PREDNISONE. [Suspect]
     Active Substance: PREDNISONE
     Dosage: 500 MG, UNK
     Route: 048
     Dates: start: 20190215, end: 20190219
  4. VINCRISTINE [Suspect]
     Active Substance: VINCRISTINE
     Indication: DIFFUSE LARGE B-CELL LYMPHOMA
     Dosage: 2 MG, UNK
     Route: 041
     Dates: start: 20190402, end: 20190402
  5. CYCLOPHOSPHAMIDE. [Suspect]
     Active Substance: CYCLOPHOSPHAMIDE
     Indication: DIFFUSE LARGE B-CELL LYMPHOMA
     Dosage: 1500 MG, UNK
     Route: 041
     Dates: start: 20190312, end: 20190312
  6. CYCLOPHOSPHAMIDE. [Suspect]
     Active Substance: CYCLOPHOSPHAMIDE
     Dosage: 1500 MG, UNK
     Route: 041
     Dates: start: 20190605, end: 20190605
  7. CYCLOPHOSPHAMIDE. [Suspect]
     Active Substance: CYCLOPHOSPHAMIDE
     Dosage: 1500 MG, UNK
     Route: 041
     Dates: start: 20190515, end: 20190515
  8. DOXORUBICIN [Suspect]
     Active Substance: DOXORUBICIN
     Dosage: 100 MG, UNK
     Route: 041
     Dates: start: 20190402, end: 20190402
  9. ONDANSETRON [Concomitant]
     Active Substance: ONDANSETRON
     Indication: PRODUCT USED FOR UNKNOWN INDICATION
     Dosage: UNK,1 AMPOULE
     Route: 042
     Dates: start: 20190215, end: 20190605
  10. RAMIPRIL. [Concomitant]
     Active Substance: RAMIPRIL
     Indication: HYPERTENSION
     Dosage: UNK
     Route: 048
  11. RANITIDINE. [Concomitant]
     Active Substance: RANITIDINE
     Indication: PROPHYLAXIS
     Dosage: UNK, 1 AMPOULE
     Route: 042
     Dates: start: 20190214
  12. DOXORUBICIN [Suspect]
     Active Substance: DOXORUBICIN
     Indication: DIFFUSE LARGE B-CELL LYMPHOMA
     Dosage: 100 MG, UNK
     Route: 041
     Dates: start: 20190515, end: 20190515
  13. DOXORUBICIN [Suspect]
     Active Substance: DOXORUBICIN
     Dosage: 100 MG, UNK
     Route: 041
     Dates: start: 20190215, end: 20190215
  14. UROMITEXAN [Concomitant]
     Active Substance: MESNA
     Indication: PROPHYLAXIS
     Dosage: 800 MG, UNK
     Route: 048
     Dates: start: 20190215, end: 20190605
  15. FENISTIL [Concomitant]
     Active Substance: DIMETHINDENE
     Indication: PROPHYLAXIS
     Dosage: UNK, 1 AMPOULE
     Route: 042
     Dates: start: 20190214, end: 20190807
  16. PARACETAMOL [Concomitant]
     Active Substance: ACETAMINOPHEN
     Indication: PROPHYLAXIS
     Dosage: 1000 MG, UNK
     Route: 048
     Dates: start: 20190214, end: 20190604
  17. RITUXIMAB (UNKNOWN) [Suspect]
     Active Substance: RITUXIMAB
     Dosage: 750 MG, UNK
     Route: 041
     Dates: start: 20190401, end: 20190401
  18. RITUXIMAB (UNKNOWN) [Suspect]
     Active Substance: RITUXIMAB
     Dosage: 750 MG, UNK
     Route: 041
     Dates: start: 20190311, end: 20190311
  19. PREDNISONE. [Suspect]
     Active Substance: PREDNISONE
     Indication: DIFFUSE LARGE B-CELL LYMPHOMA
     Dosage: 500 MG, UNK
     Route: 048
     Dates: start: 20190402, end: 20190406
  20. CYCLOPHOSPHAMIDE. [Suspect]
     Active Substance: CYCLOPHOSPHAMIDE
     Dosage: 1500 MG, UNK
     Route: 041
     Dates: start: 20190402, end: 20190402
  21. ALLOPURINOL. [Concomitant]
     Active Substance: ALLOPURINOL
     Indication: PROPHYLAXIS
     Dosage: UNK
     Route: 048
     Dates: start: 20190214, end: 20190827
  22. RITUXIMAB (UNKNOWN) [Suspect]
     Active Substance: RITUXIMAB
     Dosage: 750 MG, UNK
     Route: 041
     Dates: start: 20190514, end: 20190514
  23. VINCRISTINE [Suspect]
     Active Substance: VINCRISTINE
     Dosage: 2 MG, UNK
     Route: 041
     Dates: start: 20190423, end: 20190423
  24. DOXORUBICIN [Suspect]
     Active Substance: DOXORUBICIN
     Dosage: 100 MG, UNK
     Route: 041
     Dates: start: 20190312, end: 20190312
  25. FUROSEMIDE. [Concomitant]
     Active Substance: FUROSEMIDE
     Indication: PROPHYLAXIS
     Dosage: 20 MG, UNK
     Route: 042
     Dates: start: 20190215, end: 20190605
  26. ACICLOVIR [Concomitant]
     Active Substance: ACYCLOVIR
     Dosage: UNK
     Route: 048
     Dates: start: 20190910
  27. RITUXIMAB (UNKNOWN) [Suspect]
     Active Substance: RITUXIMAB
     Indication: DIFFUSE LARGE B-CELL LYMPHOMA
     Dosage: 750 MG, UNK
     Route: 041
     Dates: start: 20190702, end: 20190702
  28. PREDNISONE. [Suspect]
     Active Substance: PREDNISONE
     Dosage: 500 UNK, UNK
     Route: 048
     Dates: start: 20190605
  29. VINCRISTINE [Suspect]
     Active Substance: VINCRISTINE
     Dosage: 1 MG, UNK
     Route: 041
     Dates: start: 20190312, end: 20190312
  30. VINCRISTINE [Suspect]
     Active Substance: VINCRISTINE
     Dosage: 2 MG, UNK
     Route: 041
     Dates: start: 20190605
  31. CYCLOPHOSPHAMIDE. [Suspect]
     Active Substance: CYCLOPHOSPHAMIDE
     Dosage: 1500 MG, UNK
     Route: 041
     Dates: start: 20190423, end: 20190423
  32. CYCLOPHOSPHAMIDE. [Suspect]
     Active Substance: CYCLOPHOSPHAMIDE
     Dosage: 1500 MG, UNK
     Route: 041
     Dates: start: 20190215, end: 20190215
  33. DOXORUBICIN [Suspect]
     Active Substance: DOXORUBICIN
     Dosage: 100 MG, UNK
     Route: 041
     Dates: start: 20190605, end: 20190605
  34. ATORVASTATIN [Concomitant]
     Active Substance: ATORVASTATIN
     Indication: HYPERCHOLESTEROLAEMIA
     Dosage: UNK
     Route: 048
  35. COTRIM FORTE [Concomitant]
     Active Substance: SULFAMETHOXAZOLE\TRIMETHOPRIM
     Indication: PROPHYLAXIS
     Dosage: UNK
     Route: 048
     Dates: start: 20190214, end: 20190827
  36. PREDNISONE. [Suspect]
     Active Substance: PREDNISONE
     Dosage: 500 MG, UNK
     Route: 048
     Dates: start: 20190423, end: 20190427
  37. PREDNISONE. [Suspect]
     Active Substance: PREDNISONE
     Dosage: 400 MG, UNK
     Route: 048
     Dates: start: 20190515, end: 20190518
  38. PREDNISONE. [Suspect]
     Active Substance: PREDNISONE
     Dosage: 500 MG, UNK
     Route: 048
     Dates: start: 20190312, end: 20190316
  39. VINCRISTINE [Suspect]
     Active Substance: VINCRISTINE
     Dosage: 2 MG, UNK
     Route: 041
     Dates: start: 20190215, end: 20190215
  40. ACICLOVIR [Concomitant]
     Active Substance: ACYCLOVIR
     Indication: PROPHYLAXIS
     Dosage: UNK
     Route: 048
     Dates: start: 20190214, end: 20190827
  41. RITUXIMAB (UNKNOWN) [Suspect]
     Active Substance: RITUXIMAB
     Dosage: 750 MG, UNK
     Route: 041
     Dates: start: 20190423, end: 20190423
  42. RITUXIMAB (UNKNOWN) [Suspect]
     Active Substance: RITUXIMAB
     Dosage: 750 MG, UNK
     Route: 041
     Dates: start: 20190604, end: 20190604
  43. VINCRISTINE [Suspect]
     Active Substance: VINCRISTINE
     Dosage: 2 MG, UNK
     Route: 041
     Dates: start: 20190515, end: 20190515
  44. DOXORUBICIN [Suspect]
     Active Substance: DOXORUBICIN
     Dosage: 100 MG, UNK
     Route: 041
     Dates: start: 20190423, end: 20190423
  45. DEXAMETHASONE. [Concomitant]
     Active Substance: DEXAMETHASONE
     Indication: PROPHYLAXIS
     Dosage: 20 MG, UNK
     Route: 042
     Dates: start: 20190214, end: 20190807

REACTIONS (32)
  - White blood cell count decreased [Recovered/Resolved]
  - Tachycardia [Recovered/Resolved]
  - Thrombocytopenia [Recovered/Resolved]
  - Mucosal inflammation [Recovered/Resolved]
  - Dyspnoea [Not Recovered/Not Resolved]
  - Polyneuropathy [Not Recovered/Not Resolved]
  - Stress [Not Recovered/Not Resolved]
  - Red blood cell count decreased [Recovered/Resolved]
  - Oral herpes [Not Recovered/Not Resolved]
  - Thrombocytopenia [Recovered/Resolved]
  - Lymphoedema [Not Recovered/Not Resolved]
  - Alanine aminotransferase increased [Not Recovered/Not Resolved]
  - Urinary tract infection [Not Recovered/Not Resolved]
  - Protein total decreased [Not Recovered/Not Resolved]
  - Hypercalcaemia [Not Recovered/Not Resolved]
  - White blood cell count decreased [Recovered/Resolved]
  - White blood cell count decreased [Recovered/Resolved]
  - White blood cell count decreased [Recovered/Resolved]
  - White blood cell count decreased [Recovered/Resolved]
  - White blood cell count decreased [Recovered/Resolved]
  - White blood cell count decreased [Recovered/Resolved]
  - Anaemia [Recovered/Resolved]
  - Red blood cell count decreased [Recovered/Resolved]
  - Hypokalaemia [Not Recovered/Not Resolved]
  - Thrombocytopenia [Recovered/Resolved]
  - Vertigo [Not Recovered/Not Resolved]
  - Mucosal inflammation [Recovered/Resolved]
  - Anaemia [Recovered/Resolved]
  - Fatigue [Not Recovered/Not Resolved]
  - Memory impairment [Not Recovered/Not Resolved]
  - White blood cell count decreased [Recovered/Resolved]
  - Red blood cell count decreased [Recovered/Resolved]

NARRATIVE: CASE EVENT DATE: 20190214
